FAERS Safety Report 7497481-6 (Version None)
Quarter: 2011Q2

REPORT INFORMATION
  Report Type: 
  Country: None (occurrence: None)
  Receive Date: 20110523
  Receipt Date: 20110510
  Transmission Date: 20111010
  Serious: Yes (Death, Other)
  Sender: FDA-Public Use
  Company Number: US-ELI_LILLY_AND_COMPANY-US201006002808

PATIENT
  Sex: Female

DRUGS (14)
  1. FORTEO [Suspect]
     Dosage: 20 UG, DAILY (1/D)
  2. DELTASONE [Concomitant]
     Dosage: UNK, BID
     Route: 048
  3. SYNTHROID [Concomitant]
     Dosage: 50 UG, QD
     Route: 048
  4. FORTEO [Suspect]
     Indication: OSTEOPOROSIS
     Dosage: 20 UG, QD
     Route: 058
     Dates: start: 20091027
  5. PLAQUENIL [Concomitant]
     Dosage: UNK, BID
     Route: 048
  6. LISINOPRIL [Concomitant]
     Dosage: UNK, QD
     Route: 048
  7. ERGOCALCIFEROL [Concomitant]
     Dosage: UNK, WEEKLY (1/W)
     Route: 048
  8. PRILOSEC [Concomitant]
     Route: 048
  9. FOLVITE [Concomitant]
     Dosage: UNK, QD
     Route: 048
  10. METHOTREXATE [Concomitant]
     Dosage: 2.5 MG, WEEKLY (1/W)
     Route: 048
  11. TYLENOL (CAPLET) [Concomitant]
     Dosage: UNK, EVERY 8 HRS AS NEEDED
     Route: 048
  12. CALCIUM CARBONATE W/MAGNESIUM [Concomitant]
     Dosage: UNK, UNKNOWN
     Route: 048
  13. FORTEO [Suspect]
     Dosage: 20 UG, DAILY (1/D)
  14. EVOXAC [Concomitant]
     Dosage: UNK, TID
     Route: 048

REACTIONS (10)
  - PNEUMONIA [None]
  - BLOOD TRIGLYCERIDES INCREASED [None]
  - CATARACT [None]
  - PAIN IN EXTREMITY [None]
  - FEELING ABNORMAL [None]
  - SEPTIC SHOCK [None]
  - EYE DISORDER [None]
  - URINARY TRACT INFECTION [None]
  - NEOPLASM MALIGNANT [None]
  - INJECTION SITE PAIN [None]
